FAERS Safety Report 9736982 (Version 1)
Quarter: 2013Q4

REPORT INFORMATION
  Report Type: Spontaneous
  Country: US (occurrence: US)
  Receive Date: 20131206
  Receipt Date: 20131206
  Transmission Date: 20140711
  Serious: No
  Sender: FDA-Public Use
  Company Number: US-GILEAD-2009-0022677

PATIENT
  Sex: Male
  Weight: 120.2 kg

DRUGS (18)
  1. LETAIRIS [Suspect]
     Indication: PULMONARY ARTERIAL HYPERTENSION
     Route: 048
     Dates: start: 20090402
  2. REVATIO [Concomitant]
  3. OMEPRAZOLE [Concomitant]
  4. FUROSEMIDE [Concomitant]
  5. LUMIGAN [Concomitant]
  6. NORVASC [Concomitant]
  7. LISINOPRIL [Concomitant]
  8. SIMVASTATIN [Concomitant]
  9. METFORMIN HCL [Concomitant]
  10. FLONASE [Concomitant]
  11. POTASSIUM CHLORIDE [Concomitant]
  12. OXYCODONE [Concomitant]
  13. SPIRIVA [Concomitant]
  14. DOXAZOSIN MESYLATE [Concomitant]
  15. DUONEB [Concomitant]
  16. ALBUTEROL [Concomitant]
  17. RANITIDINE [Concomitant]
  18. ACTOS [Concomitant]

REACTIONS (1)
  - Oedema peripheral [Unknown]
